FAERS Safety Report 23193754 (Version 1)
Quarter: 2023Q4

REPORT INFORMATION
  Report Type: Spontaneous
  Country: FR (occurrence: FR)
  Receive Date: 20231116
  Receipt Date: 20231116
  Transmission Date: 20240110
  Serious: Yes (Death)
  Sender: FDA-Public Use
  Company Number: None

PATIENT
  Age: 62 Year
  Sex: Male
  Weight: 106 kg

DRUGS (3)
  1. HALDOL [Suspect]
     Active Substance: HALOPERIDOL
     Indication: Schizophrenia
     Route: 048
     Dates: start: 20230828, end: 20230829
  2. HALDOL [Suspect]
     Active Substance: HALOPERIDOL
     Route: 048
     Dates: start: 20221201, end: 20230822
  3. ARIPIPRAZOLE [Suspect]
     Active Substance: ARIPIPRAZOLE
     Indication: Schizophrenia
     Route: 048
     Dates: start: 20221201, end: 20230822

REACTIONS (3)
  - Hyperthermia malignant [Fatal]
  - Heat stroke [Fatal]
  - Altered state of consciousness [Fatal]

NARRATIVE: CASE EVENT DATE: 20230822
